FAERS Safety Report 16078200 (Version 1)
Quarter: 2019Q2

REPORT INFORMATION
  Report Type: Spontaneous
  Country: US (occurrence: US)
  Receive Date: 20190315
  Receipt Date: 20190315
  Transmission Date: 20190711
  Serious: Yes (Hospitalization, Disabling, Other)
  Sender: FDA-Public Use
  Company Number: None

PATIENT
  Age: 69 Year
  Sex: Female
  Weight: 87.75 kg

DRUGS (10)
  1. LOSARTAN. [Suspect]
     Active Substance: LOSARTAN
     Indication: HYPERTENSION
     Route: 048
     Dates: start: 20170101, end: 20190110
  2. EZETIMIBE. [Concomitant]
     Active Substance: EZETIMIBE
  3. MULTIVITAMIN WITH MINERALS [Concomitant]
     Active Substance: MINERALS\VITAMINS
  4. ISOSORBIDE. [Concomitant]
     Active Substance: ISOSORBIDE
  5. NITROPATCH [Concomitant]
     Active Substance: NITROGLYCERIN
  6. RAMIPRIL. [Concomitant]
     Active Substance: RAMIPRIL
  7. TAMOXIFEN [Concomitant]
     Active Substance: TAMOXIFEN
  8. CALCIUM [Concomitant]
     Active Substance: CALCIUM
  9. METOPROLOL. [Concomitant]
     Active Substance: METOPROLOL
  10. VITAMIN D NOS [Concomitant]
     Active Substance: VITAMIN D NOS

REACTIONS (1)
  - Breast cancer [None]

NARRATIVE: CASE EVENT DATE: 20180811
